FAERS Safety Report 7039928-5 (Version None)
Quarter: 2010Q4

REPORT INFORMATION
  Report Type: 
  Country: None (occurrence: None)
  Receive Date: 20101012
  Receipt Date: 20101001
  Transmission Date: 20110411
  Serious: Yes (Other)
  Sender: FDA-Public Use
  Company Number: US-PFIZER INC-2010125149

PATIENT
  Sex: Male
  Weight: 81.633 kg

DRUGS (1)
  1. GEODON [Suspect]
     Indication: ANXIETY
     Dosage: 20 MG, 2X/DAY
     Route: 048
     Dates: start: 20100901, end: 20101001

REACTIONS (9)
  - ABNORMAL BEHAVIOUR [None]
  - AGITATION [None]
  - CHILLS [None]
  - FEELING ABNORMAL [None]
  - INSOMNIA [None]
  - MALAISE [None]
  - PANIC ATTACK [None]
  - PSYCHOMOTOR HYPERACTIVITY [None]
  - TREMOR [None]
